FAERS Safety Report 10584901 (Version 1)
Quarter: 2014Q4

REPORT INFORMATION
  Report Type: Spontaneous
  Country: US (occurrence: None)
  Receive Date: 20141113
  Receipt Date: 20141113
  Transmission Date: 20150529
  Serious: Yes (Hospitalization)
  Sender: FDA-Public Use
  Company Number: None

PATIENT
  Age: 72 Year
  Sex: Female
  Weight: 68.2 kg

DRUGS (2)
  1. CISPLATIN. [Suspect]
     Active Substance: CISPLATIN
  2. ETOPOSIDE  (VP-16) [Suspect]
     Active Substance: ETOPOSIDE

REACTIONS (3)
  - Platelet count decreased [None]
  - Pain [None]
  - Chills [None]

NARRATIVE: CASE EVENT DATE: 20141104
